FAERS Safety Report 16350850 (Version 1)
Quarter: 2019Q2

REPORT INFORMATION
  Report Type: Spontaneous
  Country: US (occurrence: US)
  Receive Date: 20190524
  Receipt Date: 20190524
  Transmission Date: 20190711
  Serious: No
  Sender: FDA-Public Use
  Company Number: US-ELI_LILLY_AND_COMPANY-US201905011525

PATIENT
  Sex: Male

DRUGS (1)
  1. HUMALOG MIX75/25 [Suspect]
     Active Substance: INSULIN LISPRO
     Indication: DIABETES MELLITUS
     Dosage: 55 U, BID
     Route: 058

REACTIONS (5)
  - Intentional product misuse [Unknown]
  - Blood glucose increased [Unknown]
  - Nausea [Unknown]
  - Confusional state [Unknown]
  - Feeling abnormal [Unknown]
